FAERS Safety Report 8349589-0 (Version None)
Quarter: 2012Q2

REPORT INFORMATION
  Report Type: 
  Country: None (occurrence: None)
  Receive Date: 20120510
  Receipt Date: 20120502
  Transmission Date: 20120825
  Serious: Yes (Other)
  Sender: FDA-Public Use
  Company Number: PHHY2012BR038032

PATIENT
  Sex: Male

DRUGS (2)
  1. LOSARTAN POTASSIUM [Concomitant]
     Dosage: 100 MG, UNK
  2. RASILEZ HCT [Suspect]

REACTIONS (5)
  - ARRHYTHMIA [None]
  - MALAISE [None]
  - LETHARGY [None]
  - HYPERTENSION [None]
  - HEADACHE [None]
